FAERS Safety Report 6233086-2 (Version None)
Quarter: 2009Q2

REPORT INFORMATION
  Report Type: 
  Country: None (occurrence: None)
  Receive Date: 20090617
  Receipt Date: 20090605
  Transmission Date: 20091009
  Serious: Yes (Hospitalization)
  Sender: FDA-Public Use
  Company Number: US-KINGPHARMUSA00001-K200900683

PATIENT
  Age: 79 Year
  Sex: Male

DRUGS (11)
  1. ALTACE [Suspect]
     Indication: HYPERTENSION
     Dosage: UNK
     Route: 048
     Dates: start: 20080401, end: 20090304
  2. ALTACE [Suspect]
     Dosage: 5 MG, QD
     Route: 048
     Dates: start: 20090305
  3. HYDROCHLOROTHIAZIDE [Suspect]
     Indication: HYPERTENSION
     Dosage: UNK
     Route: 048
     Dates: start: 20080401, end: 20090304
  4. ALLOPURINOL [Concomitant]
     Indication: HYPERKALAEMIA
     Dosage: 50 MG, UNK
     Route: 048
  5. BELOC ZOK [Concomitant]
     Indication: HYPERTENSION
     Dosage: 1-0-1/2 TABLET
     Route: 048
  6. BERLTHYROX [Concomitant]
     Indication: HYPOTHYROIDISM
     Dosage: 50 UG, UNK
     Route: 048
  7. EXFORGE [Concomitant]
     Indication: HYPERTENSION
     Dosage: 160MG/5MG, UNK
     Route: 048
  8. FALITHROM [Concomitant]
     Indication: VASCULAR GRAFT
     Dosage: 0-1-1-1/2-1/2-1/2-1/2-1/2
     Route: 048
     Dates: start: 19921101
  9. MOXONIDINE [Concomitant]
     Indication: HYPERTENSION
     Dosage: 0.4 MG, UNK
     Route: 048
     Dates: start: 20090401
  10. SPIRIVA [Concomitant]
     Indication: CHRONIC OBSTRUCTIVE PULMONARY DISEASE
     Dosage: 18 UG, UNK
  11. SYMBICORT [Concomitant]
     Indication: CHRONIC OBSTRUCTIVE PULMONARY DISEASE
     Dosage: 160UG/4.5IG, UNK

REACTIONS (6)
  - CONFUSIONAL STATE [None]
  - CONVULSION [None]
  - DEHYDRATION [None]
  - HYPONATRAEMIA [None]
  - LOSS OF CONSCIOUSNESS [None]
  - SOMNOLENCE [None]
